FAERS Safety Report 9387469 (Version 2)
Quarter: 2013Q3

REPORT INFORMATION
  Report Type: Spontaneous
  Country: US (occurrence: US)
  Receive Date: 20130708
  Receipt Date: 20130809
  Transmission Date: 20140515
  Serious: No
  Sender: FDA-Public Use
  Company Number: US-PFIZER INC-2013199413

PATIENT
  Sex: Female

DRUGS (3)
  1. IBUPROFEN [Suspect]
     Dosage: UNK
  2. MELOXICAM [Suspect]
     Dosage: UNK
  3. ALEVE [Suspect]
     Dosage: UNK

REACTIONS (1)
  - Abdominal discomfort [Unknown]
